FAERS Safety Report 9512390 (Version 1)
Quarter: 2013Q1

REPORT INFORMATION
  Report Type: Spontaneous
  Country: US (occurrence: None)
  Receive Date: 20130305
  Receipt Date: 20130305
  Transmission Date: 20140127
  Serious: Yes (Other)
  Sender: FDA-Public Use
  Company Number: 163-21880-12102303

PATIENT
  Age: 73 Year
  Sex: Female
  Weight: 39.3 kg

DRUGS (2)
  1. REVLIMID (LENALIDOMIDE) (15 MILLIGRAM, CAPSULES) [Suspect]
     Indication: PLASMA CELL MYELOMA
     Dosage: 1 IN 1 D
     Route: 048
     Dates: start: 20101001
  2. KEFLEX (CEFALEXIN MONOHYDRATE) (UNKNOWN) [Concomitant]

REACTIONS (4)
  - Facial bones fracture [None]
  - Fall [None]
  - Respiratory tract congestion [None]
  - Drug dose omission [None]
